FAERS Safety Report 10224499 (Version 1)
Quarter: 2014Q2

REPORT INFORMATION
  Report Type: Spontaneous
  Country: US (occurrence: US)
  Receive Date: 20140609
  Receipt Date: 20140609
  Transmission Date: 20141212
  Serious: No
  Sender: FDA-Public Use
  Company Number: US-BAYER-2014-085785

PATIENT
  Sex: Female

DRUGS (1)
  1. ALEVE CAPLET [Suspect]
     Indication: ARTHRITIS
     Dosage: 2 DF, ONCE
     Route: 048
     Dates: start: 20140603, end: 20140603

REACTIONS (3)
  - Blood pressure decreased [Unknown]
  - Feeling abnormal [Not Recovered/Not Resolved]
  - Dizziness [Not Recovered/Not Resolved]
